FAERS Safety Report 11230823 (Version 1)
Quarter: 2015Q3

REPORT INFORMATION
  Report Type: Spontaneous
  Country: US (occurrence: US)
  Receive Date: 20150701
  Receipt Date: 20150701
  Transmission Date: 20151125
  Serious: Yes (Other)
  Sender: FDA-Public Use
  Company Number: US-BRISTOL-MYERS SQUIBB COMPANY-BMS-2015-043977

PATIENT

DRUGS (1)
  1. WARFARIN SODIUM. [Suspect]
     Active Substance: WARFARIN SODIUM
     Indication: FIBRINOUS BRONCHITIS
     Route: 065

REACTIONS (4)
  - Purpura [Recovered/Resolved]
  - Coagulopathy [Recovered/Resolved]
  - Accidental overdose [Recovered/Resolved]
  - Epistaxis [Recovered/Resolved]
